FAERS Safety Report 11255645 (Version 1)
Quarter: 2015Q3

REPORT INFORMATION
  Report Type: Spontaneous
  Country: US (occurrence: US)
  Receive Date: 20150709
  Receipt Date: 20150709
  Transmission Date: 20151125
  Serious: No
  Sender: FDA-Public Use
  Company Number: US-PURDUE-USA-2015-0120408

PATIENT
  Age: 71 Year
  Sex: Female

DRUGS (1)
  1. BUTRANS [Suspect]
     Active Substance: BUPRENORPHINE
     Indication: PAIN
     Dosage: 10 MCG/HR, WEEKLY
     Route: 062
     Dates: start: 20150105, end: 20150107

REACTIONS (5)
  - Inappropriate schedule of drug administration [Unknown]
  - Dizziness [Unknown]
  - Fall [Recovered/Resolved]
  - Drug effect increased [Unknown]
  - Disorientation [Unknown]

NARRATIVE: CASE EVENT DATE: 20150105
